FAERS Safety Report 5441307-9 (Version None)
Quarter: 2007Q3

REPORT INFORMATION
  Report Type: 
  Country: None (occurrence: None)
  Receive Date: 20070903
  Receipt Date: 20070823
  Transmission Date: 20080115
  Serious: Yes (Other)
  Sender: FDA-Public Use
  Company Number: PHEH2007US11498

PATIENT
  Sex: Female

DRUGS (2)
  1. FEMARA [Suspect]
     Dosage: 2.5 MG, QD
     Route: 048
  2. ZOMETA [Concomitant]
     Indication: BREAST CANCER METASTATIC

REACTIONS (2)
  - DERMATITIS BULLOUS [None]
  - URTICARIA [None]
